FAERS Safety Report 10564027 (Version 2)
Quarter: 2014Q4

REPORT INFORMATION
  Report Type: Spontaneous
  Country: CA (occurrence: CA)
  Receive Date: 20141104
  Receipt Date: 20141104
  Transmission Date: 20150529
  Serious: Yes (Death)
  Sender: FDA-Public Use
  Company Number: CA-PFIZER INC-2014202623

PATIENT
  Age: 68 Year
  Sex: Female

DRUGS (3)
  1. DILANTIN [Suspect]
     Active Substance: PHENYTOIN
     Indication: SEIZURE
     Dosage: 100 MG, 3X/DAY
     Route: 048
     Dates: start: 20130610
  2. DILANTIN [Suspect]
     Active Substance: PHENYTOIN
     Indication: SEIZURE
     Dosage: 50 MG, 1X/DAY
     Dates: start: 20130813
  3. DILANTIN [Suspect]
     Active Substance: PHENYTOIN
     Indication: SEIZURE
     Dosage: 11 ML OF 25 MG/ML AT BEDTIME
     Dates: start: 20140719, end: 20140719

REACTIONS (3)
  - Disease progression [Fatal]
  - Dysphagia [Not Recovered/Not Resolved]
  - Brain neoplasm malignant [Fatal]

NARRATIVE: CASE EVENT DATE: 201407
